FAERS Safety Report 8063816-9 (Version None)
Quarter: 2012Q1

REPORT INFORMATION
  Report Type: 
  Country: None (occurrence: None)
  Receive Date: 20120123
  Receipt Date: 20120110
  Transmission Date: 20120608
  Serious: Yes (Hospitalization)
  Sender: FDA-Public Use
  Company Number: JP-MERCK-1007USA01253

PATIENT
  Age: 60 Year
  Sex: Female
  Weight: 55 kg

DRUGS (8)
  1. NABOAL [Concomitant]
     Route: 048
     Dates: start: 20040518
  2. MUCOSTA [Concomitant]
     Route: 048
     Dates: start: 20060530
  3. RHEUMATREX [Concomitant]
     Route: 048
     Dates: start: 20040518
  4. PROGRAF [Concomitant]
     Route: 048
     Dates: start: 20060530
  5. FOLIC ACID [Concomitant]
     Dosage: DAILY DOSAGE UNKNOWN
     Route: 048
     Dates: start: 20040518
  6. PREDNISOLONE [Concomitant]
     Route: 048
     Dates: start: 20080812
  7. RHEUMATREX [Concomitant]
     Route: 048
     Dates: start: 20040518
  8. FOSAMAX [Suspect]
     Indication: OSTEOPOROSIS
     Route: 048
     Dates: start: 20080219, end: 20100530

REACTIONS (1)
  - FEMUR FRACTURE [None]
